FAERS Safety Report 6660723-0 (Version None)
Quarter: 2010Q1

REPORT INFORMATION
  Report Type: 
  Country: None (occurrence: None)
  Receive Date: 20100331
  Receipt Date: 20100323
  Transmission Date: 20100710
  Serious: Yes (Hospitalization)
  Sender: FDA-Public Use
  Company Number: JP-B.I. PHARMACEUTICALS,INC./RIDGEFIELD-2009-BP-07062YA

PATIENT
  Sex: Male

DRUGS (9)
  1. HARNAL (TAMSULOSIN) ORODISPERSABLE CR [Suspect]
     Route: 048
     Dates: end: 20090309
  2. MYSLEE (ZOLPIDEM) [Suspect]
     Route: 048
     Dates: end: 20090309
  3. MEILAX (ETHYL LOFLAZEPATE) [Suspect]
     Route: 048
     Dates: end: 20090309
  4. VFEND [Suspect]
     Route: 048
     Dates: end: 20090309
  5. GASCON (DIMETICONE) [Suspect]
     Route: 048
     Dates: end: 20090309
  6. AMOBAN (ZOPICLONE) [Suspect]
     Route: 048
     Dates: end: 20090309
  7. SP TROCHE (DEQUALINIUM CHLORIDE) [Suspect]
     Route: 048
     Dates: end: 20090309
  8. DEPAS (ETIZOLAM) [Suspect]
     Route: 048
     Dates: end: 20090309
  9. SENNOSIDE (SENNOSIDE A+B) [Suspect]
     Route: 048

REACTIONS (1)
  - HEPATIC FUNCTION ABNORMAL [None]
